FAERS Safety Report 4788958-2 (Version None)
Quarter: 2005Q4

REPORT INFORMATION
  Report Type: 
  Country: None (occurrence: None)
  Receive Date: 20051004
  Receipt Date: 20050923
  Transmission Date: 20060501
  Serious: Yes (Other)
  Sender: FDA-Public Use
  Company Number: 2005132429

PATIENT
  Age: 17 Year
  Sex: Male

DRUGS (1)
  1. LISTERINE (MENTHOL, METHYL SALICYLATE, EUCALYPTOL, THYMOL) [Suspect]
     Dosage: ALMOST 1/2  BOTTLE ONCE, ORAL
     Route: 048
     Dates: start: 20050923, end: 20050923

REACTIONS (2)
  - DRUG ADMINISTRATION ERROR [None]
  - FEELING DRUNK [None]
